FAERS Safety Report 8947264 (Version 2)
Quarter: 2013Q1

REPORT INFORMATION
  Report Type: Spontaneous
  Country: US (occurrence: US)
  Receive Date: 20121205
  Receipt Date: 20130110
  Transmission Date: 20140127
  Serious: No
  Sender: FDA-Public Use
  Company Number: US-009507513-1211USA009877

PATIENT
  Age: 27 None
  Sex: Female
  Weight: 76.19 kg

DRUGS (2)
  1. IMPLANON [Suspect]
     Indication: CONTRACEPTION
     Dosage: 1 ROD FOR 3 YEARS
     Route: 059
     Dates: start: 20101217
  2. ALPRAZOLAM [Concomitant]

REACTIONS (2)
  - Amenorrhoea [Recovered/Resolved]
  - Hypomenorrhoea [Unknown]
